FAERS Safety Report 18420257 (Version 1)
Quarter: 2020Q4

REPORT INFORMATION
  Report Type: Spontaneous
  Country: US (occurrence: US)
  Receive Date: 20201023
  Receipt Date: 20201023
  Transmission Date: 20210114
  Serious: Yes (Other)
  Sender: FDA-Public Use
  Company Number: US-CELGENEUS-USA-20201004112

PATIENT
  Sex: Female

DRUGS (1)
  1. POMALYST [Suspect]
     Active Substance: POMALIDOMIDE
     Indication: PLASMA CELL MYELOMA
     Dosage: 2 MILLIGRAM
     Route: 048
     Dates: start: 20200408

REACTIONS (6)
  - Haematocrit increased [Unknown]
  - Product dose omission issue [Unknown]
  - Headache [Unknown]
  - Haemoglobin increased [Unknown]
  - Full blood count decreased [Unknown]
  - Rash vesicular [Unknown]

NARRATIVE: CASE EVENT DATE: 2020
